FAERS Safety Report 7628574-8 (Version None)
Quarter: 2011Q3

REPORT INFORMATION
  Report Type: 
  Country: None (occurrence: None)
  Receive Date: 20110722
  Receipt Date: 20110708
  Transmission Date: 20111222
  Serious: Yes (Other)
  Sender: FDA-Public Use
  Company Number: US-BAYER-2011-059979

PATIENT
  Age: 68 Year
  Sex: Female

DRUGS (4)
  1. ASPIRIN [Suspect]
     Dosage: UNK UNK, UNK
     Route: 048
  2. PLAVIX [Suspect]
     Dosage: DAILY DOSE 75 MG
     Route: 048
  3. COUMADIN [Suspect]
     Dosage: UNK
     Route: 048
  4. LOVENOX [Suspect]
     Dosage: 140 MG, PRN

REACTIONS (1)
  - DEEP VEIN THROMBOSIS [None]
